FAERS Safety Report 4867137-4 (Version None)
Quarter: 2005Q4

REPORT INFORMATION
  Report Type: 
  Country: None (occurrence: None)
  Receive Date: 20051222
  Receipt Date: 20051216
  Transmission Date: 20060501
  Serious: Yes (Other)
  Sender: FDA-Public Use
  Company Number: 2004-01-2045

PATIENT
  Age: 16 Month
  Sex: Female
  Weight: 11.7935 kg

DRUGS (3)
  1. CLARITIN [Suspect]
     Indication: COUGH
     Dosage: 1/2 TSP ORAL
     Route: 048
     Dates: start: 20040116, end: 20040117
  2. CLARITIN [Suspect]
     Indication: EYE DISORDER
     Dosage: 1/2 TSP ORAL
     Route: 048
     Dates: start: 20040116, end: 20040117
  3. CLARITIN [Suspect]
     Indication: RHINORRHOEA
     Dosage: 1/2 TSP ORAL
     Route: 048
     Dates: start: 20040116, end: 20040117

REACTIONS (3)
  - BLOOD ALKALINE PHOSPHATASE INCREASED [None]
  - PYREXIA [None]
  - THERAPY NON-RESPONDER [None]
